FAERS Safety Report 7626691-X (Version None)
Quarter: 2011Q3

REPORT INFORMATION
  Report Type: 
  Country: None (occurrence: None)
  Receive Date: 20110721
  Receipt Date: 20110620
  Transmission Date: 20111222
  Serious: No
  Sender: FDA-Public Use
  Company Number: US-NOVEN-11US002655

PATIENT
  Sex: Female

DRUGS (7)
  1. TRAZODONE HCL [Concomitant]
     Indication: INSOMNIA
     Dosage: 400 MG, BEDTIME
     Route: 048
  2. CELEXA [Concomitant]
     Indication: PRODUCT USED FOR UNKNOWN INDICATION
     Dosage: 40 MG, QD
     Route: 048
  3. OXYCODONE HCL [Concomitant]
     Indication: PAIN
     Dosage: 5 MG, Q4H, PRN
     Route: 048
  4. FENTANYL [Suspect]
     Indication: PAIN
     Dosage: 50 UG, Q48H
     Route: 062
     Dates: start: 20110619
  5. FLEXERIL [Concomitant]
     Indication: MYALGIA
     Dosage: 10 MG, Q6H, PRN
     Route: 048
  6. NEURONTIN [Concomitant]
     Indication: NEURALGIA
     Dosage: 300 MG, TID
     Route: 048
  7. KLONOPIN [Concomitant]
     Indication: PRODUCT USED FOR UNKNOWN INDICATION
     Dosage: TID, PRN
     Route: 048

REACTIONS (1)
  - INADEQUATE ANALGESIA [None]
